FAERS Safety Report 10213740 (Version 1)
Quarter: 2014Q2

REPORT INFORMATION
  Report Type: Spontaneous
  Country: US (occurrence: None)
  Receive Date: 20140530
  Receipt Date: 20140530
  Transmission Date: 20141212
  Serious: Yes (Hospitalization)
  Sender: FDA-Public Use
  Company Number: B0997652A

PATIENT
  Age: 69 Year
  Sex: Female

DRUGS (4)
  1. CIMETIDINE [Suspect]
     Indication: PRODUCT USED FOR UNKNOWN INDICATION
  2. FLUOXETINE (FORMULATION UNKNOWN) (GENERIC) (FLUOXETINE) [Suspect]
     Indication: PRODUCT USED FOR UNKNOWN INDICATION
  3. BUMETANIDE [Concomitant]
  4. RANOLAZINE [Suspect]
     Indication: ANGINA PECTORIS

REACTIONS (10)
  - Torsade de pointes [None]
  - Malaise [None]
  - Pyrexia [None]
  - Urinary tract infection [None]
  - Hypomagnesaemia [None]
  - Hypokalaemia [None]
  - Cardiac arrest [None]
  - Ventricular tachycardia [None]
  - Drug interaction [None]
  - Pulse absent [None]
